FAERS Safety Report 11977895 (Version 3)
Quarter: 2016Q3

REPORT INFORMATION
  Report Type: Spontaneous
  Country: JP (occurrence: JP)
  Receive Date: 20160129
  Receipt Date: 20160706
  Transmission Date: 20161109
  Serious: Yes (Other)
  Sender: FDA-Public Use
  Company Number: JP-BAYER-2016-012148

PATIENT
  Age: 37 Year
  Sex: Female
  Weight: 53.3 kg

DRUGS (8)
  1. BAYASPIRIN [Suspect]
     Active Substance: ASPIRIN
     Indication: HYPERTENSIVE NEPHROPATHY
  2. BAYASPIRIN [Suspect]
     Active Substance: ASPIRIN
     Indication: CEREBELLAR INFARCTION
     Dosage: 100 MG, UNK
     Route: 048
     Dates: start: 20111201
  3. GAMOFA [Concomitant]
     Active Substance: FAMOTIDINE
     Indication: ABDOMINAL PAIN UPPER
     Dosage: DAILY DOSE 20 MG
     Route: 048
     Dates: start: 20090309
  4. BAYASPIRIN [Suspect]
     Active Substance: ASPIRIN
     Indication: ANTIPHOSPHOLIPID SYNDROME
     Dosage: 100 MG, QD
     Route: 048
     Dates: start: 20090916, end: 20110628
  5. RINDERON V [Concomitant]
     Active Substance: BETAMETHASONE VALERATE
     Indication: PREMATURE LABOUR
     Dosage: UNK
     Dates: start: 20110630
  6. BAYASPIRIN [Suspect]
     Active Substance: ASPIRIN
     Indication: GESTATIONAL HYPERTENSION
  7. HEPARIN CALCIUM [Suspect]
     Active Substance: HEPARIN CALCIUM
     Indication: THROMBOSIS PROPHYLAXIS
     Dosage: DAILY DOSE 10000 U
     Route: 042
     Dates: start: 20110120, end: 20111130
  8. ALEVIATIN [Concomitant]
     Active Substance: PHENYTOIN SODIUM
     Indication: EPILEPSY
     Dosage: DAILY DOSE 50 MG
     Route: 048
     Dates: start: 20090330

REACTIONS (8)
  - Foetal distress syndrome [None]
  - Seizure [None]
  - Vomiting [None]
  - Pancytopenia [Recovered/Resolved]
  - Gestational hypertension [None]
  - Renal hypertension [None]
  - Maternal exposure during pregnancy [Recovered/Resolved]
  - Premature delivery [None]

NARRATIVE: CASE EVENT DATE: 2011
